FAERS Safety Report 6857918-X (Version None)
Quarter: 2010Q3

REPORT INFORMATION
  Report Type: 
  Country: None (occurrence: None)
  Receive Date: 20100714
  Receipt Date: 20100125
  Transmission Date: 20110219
  Serious: Yes (Death, Hospitalization, Other)
  Sender: FDA-Public Use
  Company Number: 2010002736

PATIENT
  Age: 67 Year
  Sex: Female

DRUGS (23)
  1. ERLOTINIB HYDROCHLORIDE [Suspect]
     Indication: PANCREATIC CARCINOMA METASTATIC
     Dosage: (100 MG, QD), ORAL
     Route: 048
     Dates: start: 20090317, end: 20090526
  2. GEMCITABINE [Suspect]
     Indication: PANCREATIC CARCINOMA
     Dosage: (1800 MG,QW), INTRAVENOUS
     Route: 042
     Dates: start: 20090317, end: 20090609
  3. NOVALGIN (METAMIZOLE SODIUM) [Concomitant]
  4. METOCLOPRAMIDE [Concomitant]
  5. PANTOPRAZOLE SODIUM [Concomitant]
  6. ACETYLCYSTEINE [Concomitant]
  7. SPIRONOLACTONE [Concomitant]
  8. METAMIZOLE (METAMIZOLE) [Concomitant]
  9. FUROSEMIDE [Concomitant]
  10. DIPYRONE (METAMIZOLE SODIUM) [Concomitant]
  11. ERYTHROMYCIN [Concomitant]
  12. TRAMADOL HCL [Concomitant]
  13. ACETAMINOPHEN [Concomitant]
  14. SELENASE (SELENIDE SODIUM) [Concomitant]
  15. ZINC ASPARTATE [Concomitant]
  16. PHYTONADIONE [Concomitant]
  17. CIPROFLOXACIN HYDROCHLORIDE [Concomitant]
  18. UNACID (UNACID) [Concomitant]
  19. VANCOMYCIN [Concomitant]
  20. LOPERAMIDE HYDROCHLORIDE [Concomitant]
  21. CIPROFLOXACIN [Concomitant]
  22. METRONIDAZOLE [Concomitant]
  23. MEROPENEM [Concomitant]

REACTIONS (7)
  - DUODENAL STENOSIS [None]
  - GENERAL PHYSICAL HEALTH DETERIORATION [None]
  - ILEUS [None]
  - LUNG DISORDER [None]
  - PERITONITIS [None]
  - PULMONARY EMBOLISM [None]
  - WEIGHT DECREASED [None]
